FAERS Safety Report 5470065-7 (Version None)
Quarter: 2007Q3

REPORT INFORMATION
  Report Type: 
  Country: None (occurrence: None)
  Receive Date: 20070927
  Receipt Date: 20070918
  Transmission Date: 20080115
  Serious: No
  Sender: FDA-Public Use
  Company Number: US-BOEHRINGER INGELHEIM PHARMACEUTICALS, INC.-2006-BP-05725BP

PATIENT
  Sex: Female

DRUGS (6)
  1. COMBIVENT [Suspect]
     Indication: CHRONIC OBSTRUCTIVE PULMONARY DISEASE
     Route: 055
     Dates: start: 20010101
  2. COMBIVENT [Suspect]
     Indication: ASTHMA
  3. FORADIL [Concomitant]
  4. ASMANEX TWISTHALER [Concomitant]
  5. SINGULAIR [Concomitant]
  6. PREDNISONE [Concomitant]

REACTIONS (8)
  - DRUG EFFECT DECREASED [None]
  - DYSPNOEA [None]
  - EXERCISE TOLERANCE DECREASED [None]
  - INFLAMMATION [None]
  - LUNG DISORDER [None]
  - PULMONARY CONGESTION [None]
  - PULMONARY FUNCTION TEST DECREASED [None]
  - RESPIRATORY TRACT IRRITATION [None]
